FAERS Safety Report 15104349 (Version 1)
Quarter: 2018Q3

REPORT INFORMATION
  Report Type: Spontaneous
  Country: US (occurrence: US)
  Receive Date: 20180703
  Receipt Date: 20180703
  Transmission Date: 20181010
  Serious: Yes (Hospitalization, Other)
  Sender: FDA-Public Use
  Company Number: US-PFIZER INC-2018264005

PATIENT
  Age: 79 Year
  Sex: Male

DRUGS (18)
  1. LYRICA [Suspect]
     Active Substance: PREGABALIN
     Dosage: 300 MG, SINGLE
     Route: 048
     Dates: start: 201712
  2. BABY ASPIRIN [Concomitant]
     Active Substance: ASPIRIN
     Dosage: UNK UNK, 1X/DAY
     Route: 048
  3. CELEBREX [Concomitant]
     Active Substance: CELECOXIB
     Dosage: UNK
  4. VOLTAREN [Concomitant]
     Active Substance: DICLOFENAC SODIUM
     Dosage: UNK (PUT ON HIS FOOT RUBBED ONTO HIS FOOT)
  5. PLAVIX [Concomitant]
     Active Substance: CLOPIDOGREL BISULFATE
     Dosage: UNK
  6. LYRICA [Suspect]
     Active Substance: PREGABALIN
     Indication: FIBROMYALGIA
     Dosage: 50 MG, DAILY
     Route: 048
  7. LIPITOR [Concomitant]
     Active Substance: ATORVASTATIN CALCIUM
     Dosage: UNK
  8. SERENOA REPENS [Concomitant]
     Active Substance: SERENOA REPENS WHOLE
     Dosage: UNK
  9. ATIVAN [Concomitant]
     Active Substance: LORAZEPAM
     Dosage: 1 MG, 2X/DAY (EVERY 12 HOURS)
  10. CARVEDILOL. [Concomitant]
     Active Substance: CARVEDILOL
     Dosage: 3.125 MG, 2X/DAY
  11. DULOXETINE. [Concomitant]
     Active Substance: DULOXETINE
     Dosage: UNK
  12. LEVOTHYROXINE. [Concomitant]
     Active Substance: LEVOTHYROXINE
     Dosage: UNK
  13. MYRBETRIQ [Concomitant]
     Active Substance: MIRABEGRON
     Dosage: UNK
  14. COENZYME Q10 [Concomitant]
     Active Substance: UBIDECARENONE
     Dosage: UNK
  15. LISINOPRIL. [Concomitant]
     Active Substance: LISINOPRIL
     Dosage: UNK
  16. TYLENOL [Concomitant]
     Active Substance: ACETAMINOPHEN
     Dosage: UNK
  17. CLARITIN [Concomitant]
     Active Substance: LORATADINE
     Dosage: UNK
  18. NAMENDA [Concomitant]
     Active Substance: MEMANTINE HYDROCHLORIDE
     Dosage: UNK

REACTIONS (10)
  - Drug ineffective [Unknown]
  - Asthenia [Not Recovered/Not Resolved]
  - Pain [Not Recovered/Not Resolved]
  - Dizziness [Not Recovered/Not Resolved]
  - Paralysis [Not Recovered/Not Resolved]
  - Intentional product misuse [Unknown]
  - Accidental overdose [Recovered/Resolved with Sequelae]
  - Loss of consciousness [Unknown]
  - Fatigue [Not Recovered/Not Resolved]
  - Hypersomnia [Not Recovered/Not Resolved]

NARRATIVE: CASE EVENT DATE: 201712
